FAERS Safety Report 8228659-1 (Version None)
Quarter: 2012Q1

REPORT INFORMATION
  Report Type: 
  Country: None (occurrence: None)
  Receive Date: 20120322
  Receipt Date: 20110207
  Transmission Date: 20120608
  Serious: Yes (Other)
  Sender: FDA-Public Use
  Company Number: US-BRISTOL-MYERS SQUIBB COMPANY-15510639

PATIENT
  Age: 74 Year
  Sex: Female

DRUGS (13)
  1. PROTONIX [Suspect]
  2. BENADRYL [Concomitant]
     Indication: PREMEDICATION
  3. ATIVAN [Suspect]
  4. ERBITUX [Suspect]
     Indication: HEAD AND NECK CANCER
     Dosage: 1 DF: 100CC
     Route: 042
     Dates: start: 20110124
  5. SYMBICORT [Suspect]
  6. AMBIEN [Suspect]
  7. ZOFRAN [Suspect]
  8. PROAIR HFA [Suspect]
  9. ASPIRIN [Suspect]
  10. CLARITIN [Suspect]
  11. DILTIAZEM HCL [Suspect]
  12. SIMVASTATIN [Suspect]
  13. LORTAB [Suspect]

REACTIONS (4)
  - WHEEZING [None]
  - CHEST DISCOMFORT [None]
  - DYSPNOEA [None]
  - BRONCHOSPASM [None]
